FAERS Safety Report 20445528 (Version 3)
Quarter: 2022Q2

REPORT INFORMATION
  Report Type: Spontaneous
  Country: US (occurrence: None)
  Receive Date: 20220208
  Receipt Date: 20220504
  Transmission Date: 20220721
  Serious: Yes (Death, Other)
  Sender: FDA-Public Use
  Company Number: 2022A058616

PATIENT
  Age: 66 Year
  Sex: Male
  Weight: 78 kg

DRUGS (48)
  1. NEXIUM [Suspect]
     Active Substance: ESOMEPRAZOLE MAGNESIUM
     Indication: Barrett^s oesophagus
     Route: 048
     Dates: start: 2010, end: 2019
  2. NEXIUM [Suspect]
     Active Substance: ESOMEPRAZOLE MAGNESIUM
     Indication: Barrett^s oesophagus
     Route: 048
     Dates: start: 2001, end: 2019
  3. NEXIUM [Suspect]
     Active Substance: ESOMEPRAZOLE MAGNESIUM
     Indication: Barrett^s oesophagus
     Dosage: GENERIC
     Route: 065
     Dates: start: 2017
  4. PRILOSEC [Suspect]
     Active Substance: OMEPRAZOLE MAGNESIUM
     Indication: Barrett^s oesophagus
     Route: 048
     Dates: start: 1989, end: 2001
  5. PRAVASTATIN [Concomitant]
     Active Substance: PRAVASTATIN
     Indication: Hyperlipidaemia
     Dates: start: 2007, end: 2013
  6. ALLOPURINOL [Concomitant]
     Active Substance: ALLOPURINOL
     Dates: start: 2007, end: 2016
  7. AZITHROMYCIN [Concomitant]
     Active Substance: AZITHROMYCIN
     Indication: Infection
     Dates: start: 2008, end: 2018
  8. DOXYCYCLINE [Concomitant]
     Active Substance: DOXYCYCLINE
     Indication: Infection
     Dates: start: 2008, end: 2018
  9. ERYTHROMYCIN [Concomitant]
     Active Substance: ERYTHROMYCIN
     Indication: Infection
     Dates: start: 2011
  10. PLAVIX [Concomitant]
     Active Substance: CLOPIDOGREL BISULFATE
     Indication: Hypertension
     Dates: start: 2010
  11. TRAMADOL HYDROCHLORIDE [Concomitant]
     Active Substance: TRAMADOL HYDROCHLORIDE
     Indication: Pain
     Dates: start: 2012, end: 2017
  12. CEFADROXIL [Concomitant]
     Active Substance: CEFADROXIL
     Indication: Infection
     Dates: start: 2012
  13. CIPROFLOXACIN [Concomitant]
     Active Substance: CIPROFLOXACIN
     Indication: Infection
     Dates: start: 2012, end: 2016
  14. AMOXICILLIN [Concomitant]
     Active Substance: AMOXICILLIN
     Indication: Infection
     Dates: start: 2012, end: 2016
  15. LOSARTAN [Concomitant]
     Active Substance: LOSARTAN
     Indication: Hypertension
     Dates: start: 2010
  16. CEFUROXIME [Concomitant]
     Active Substance: CEFUROXIME
     Indication: Infection
     Dates: start: 2015, end: 2016
  17. TORSEMIDE [Concomitant]
     Active Substance: TORSEMIDE
     Indication: Hypertension
     Dates: start: 2018
  18. HYDRALAZINE [Concomitant]
     Active Substance: HYDRALAZINE HYDROCHLORIDE
     Indication: Hypertension
     Dates: start: 2018, end: 2019
  19. CLOPIDOGREL [Concomitant]
     Active Substance: CLOPIDOGREL BISULFATE
     Indication: Hypertension
     Dates: start: 2012
  20. CELEBREX [Concomitant]
     Active Substance: CELECOXIB
     Indication: Pain
     Dates: start: 2013
  21. AMITRIPYTYLINE [Concomitant]
     Dates: start: 2013
  22. CELECOXIB [Concomitant]
     Active Substance: CELECOXIB
     Indication: Pain
     Dates: start: 2015
  23. DICLOFENAC [Concomitant]
     Active Substance: DICLOFENAC
     Indication: Pain
     Dates: start: 2017
  24. VITAMIN C [Concomitant]
     Active Substance: ASCORBIC ACID
     Indication: Energy increased
     Dates: start: 2001, end: 2019
  25. TYLENOL [Concomitant]
     Active Substance: ACETAMINOPHEN
     Indication: Pain
     Dosage: AS NEEDED
  26. FISH OIL [Concomitant]
     Active Substance: FISH OIL
     Indication: Energy increased
     Dates: start: 2010, end: 2019
  27. IRON [Concomitant]
     Active Substance: IRON
     Indication: Deficiency anaemia
     Dates: start: 2015, end: 2019
  28. VITAMIN D [Concomitant]
     Active Substance: VITAMIN D NOS
     Indication: Energy increased
     Dates: start: 2001, end: 2019
  29. COENZYME Q10 [Concomitant]
     Active Substance: DIETARY SUPPLEMENT\UBIDECARENONE
     Indication: Circulatory collapse
     Dates: start: 2014, end: 2019
  30. FOLIC ACID [Concomitant]
     Active Substance: FOLIC ACID
     Indication: Circulatory collapse
     Dates: start: 2007, end: 2019
  31. MAGNESIUM OXIDE [Concomitant]
     Active Substance: MAGNESIUM OXIDE
     Indication: Renal disorder
     Dates: end: 2019
  32. ANTACID [Concomitant]
     Active Substance: ALUMINUM HYDROXIDE\CALCIUM CARBONATE\DIMETHICONE\MAGNESIUM HYDROXIDE
     Dosage: TUMS, ALKA-SELTZER, MILD OF MAGNESIA, GAVISCON, PEPTO-BISMOL, MALLOX, MLANTA
  33. PREDNISONE [Concomitant]
     Active Substance: PREDNISONE
     Dosage: TUMS, ALKA-SELTZER, MILD OF MAGNESIA, GAVISCON, PEPTO-BISMOL, MALLOX, MLANTA
  34. CHOLECALCIFEROL [Concomitant]
     Active Substance: CHOLECALCIFEROL
     Dosage: TUMS, ALKA-SELTZER, MILD OF MAGNESIA, GAVISCON, PEPTO-BISMOL, MALLOX, MLANTA
  35. CHOLESTYRAMINE [Concomitant]
     Active Substance: CHOLESTYRAMINE
     Dosage: TUMS, ALKA-SELTZER, MILD OF MAGNESIA, GAVISCON, PEPTO-BISMOL, MALLOX, MLANTA
  36. CYANOCOBALAMIN [Concomitant]
     Active Substance: CYANOCOBALAMIN
     Dosage: TUMS, ALKA-SELTZER, MILD OF MAGNESIA, GAVISCON, PEPTO-BISMOL, MALLOX, MLANTA
  37. OMEGA 3 [Concomitant]
     Active Substance: CAPSAICIN
     Dosage: TUMS, ALKA-SELTZER, MILD OF MAGNESIA, GAVISCON, PEPTO-BISMOL, MALLOX, MLANTA
  38. OXYBUTYNIN [Concomitant]
     Active Substance: OXYBUTYNIN
     Dosage: TUMS, ALKA-SELTZER, MILD OF MAGNESIA, GAVISCON, PEPTO-BISMOL, MALLOX, MLANTA
  39. OXYCODONE [Concomitant]
     Active Substance: OXYCODONE
     Dosage: TUMS, ALKA-SELTZER, MILD OF MAGNESIA, GAVISCON, PEPTO-BISMOL, MALLOX, MLANTA
  40. ASCORBIC ACID [Concomitant]
     Active Substance: ASCORBIC ACID
     Dosage: TUMS, ALKA-SELTZER, MILD OF MAGNESIA, GAVISCON, PEPTO-BISMOL, MALLOX, MLANTA
  41. TAMSULOSIN [Concomitant]
     Active Substance: TAMSULOSIN
     Dosage: TUMS, ALKA-SELTZER, MILD OF MAGNESIA, GAVISCON, PEPTO-BISMOL, MALLOX, MLANTA
  42. ONDANSETRON [Concomitant]
     Active Substance: ONDANSETRON
     Dosage: TUMS, ALKA-SELTZER, MILD OF MAGNESIA, GAVISCON, PEPTO-BISMOL, MALLOX, MLANTA
  43. ENOXAPARIN [Concomitant]
     Active Substance: ENOXAPARIN
     Dosage: TUMS, ALKA-SELTZER, MILD OF MAGNESIA, GAVISCON, PEPTO-BISMOL, MALLOX, MLANTA
  44. AMLODIPINE [Concomitant]
     Active Substance: AMLODIPINE BESYLATE
     Dosage: TUMS, ALKA-SELTZER, MILD OF MAGNESIA, GAVISCON, PEPTO-BISMOL, MALLOX, MLANTA
  45. DOXAZOSIN [Concomitant]
     Active Substance: DOXAZOSIN MESYLATE
     Dosage: TUMS, ALKA-SELTZER, MILD OF MAGNESIA, GAVISCON, PEPTO-BISMOL, MALLOX, MLANTA
  46. VICODIN [Concomitant]
     Active Substance: ACETAMINOPHEN\HYDROCODONE BITARTRATE
     Dosage: TUMS, ALKA-SELTZER, MILD OF MAGNESIA, GAVISCON, PEPTO-BISMOL, MALLOX, MLANTA
  47. INDAPAMIDE [Concomitant]
     Active Substance: INDAPAMIDE
     Dosage: TUMS, ALKA-SELTZER, MILD OF MAGNESIA, GAVISCON, PEPTO-BISMOL, MALLOX, MLANTA
  48. VIAGRA [Concomitant]
     Active Substance: SILDENAFIL CITRATE
     Dosage: TUMS, ALKA-SELTZER, MILD OF MAGNESIA, GAVISCON, PEPTO-BISMOL, MALLOX, MLANTA

REACTIONS (7)
  - Ureteric cancer metastatic [Fatal]
  - Exposure to radiation [Fatal]
  - Chronic kidney disease [Unknown]
  - Renal failure [Unknown]
  - End stage renal disease [Unknown]
  - Hyperparathyroidism secondary [Unknown]
  - Nephrogenic anaemia [Unknown]

NARRATIVE: CASE EVENT DATE: 20100101
